FAERS Safety Report 23053735 (Version 4)
Quarter: 2024Q1

REPORT INFORMATION
  Report Type: Report from Study
  Country: PE (occurrence: PE)
  Receive Date: 20231011
  Receipt Date: 20240130
  Transmission Date: 20240409
  Serious: Yes (Other)
  Sender: FDA-Public Use
  Company Number: PE-002147023-NVSC2023PE215196

PATIENT
  Age: 55 Year
  Sex: Female
  Weight: 98 kg

DRUGS (10)
  1. COSENTYX [Suspect]
     Active Substance: SECUKINUMAB
     Indication: Psoriatic arthropathy
     Dosage: 300 MG, QMO (2 AMPOULES)
     Route: 058
     Dates: start: 20230825
  2. COSENTYX [Suspect]
     Active Substance: SECUKINUMAB
     Dosage: 1 DOSAGE FORM (AMPOULE), QW
     Route: 058
     Dates: start: 20230826
  3. COSENTYX [Suspect]
     Active Substance: SECUKINUMAB
     Dosage: 1 DOSAGE FORM (AMPOULE), QW
     Route: 058
     Dates: start: 20230902
  4. COSENTYX [Suspect]
     Active Substance: SECUKINUMAB
     Dosage: 300 MG, QW (2 AMPOULES)
     Route: 058
     Dates: start: 20230909
  5. COSENTYX [Suspect]
     Active Substance: SECUKINUMAB
     Dosage: 300 MG, QW (2 AMPOULES)
     Route: 058
     Dates: start: 20230916
  6. COSENTYX [Suspect]
     Active Substance: SECUKINUMAB
     Dosage: 300 MG, QW (2 AMPOULES)
     Route: 058
     Dates: start: 20230923
  7. COSENTYX [Suspect]
     Active Substance: SECUKINUMAB
     Dosage: 300 MG, QMO
     Route: 065
  8. COSENTYX [Suspect]
     Active Substance: SECUKINUMAB
     Dosage: 300 MG, QMO (2 AMPOULES)
     Route: 058
     Dates: start: 20231210
  9. LOSARTAN [Concomitant]
     Active Substance: LOSARTAN
     Indication: Product used for unknown indication
     Dosage: 50 MG
     Route: 065
  10. LOSARTAN [Concomitant]
     Active Substance: LOSARTAN
     Dosage: 25 MG, QD (DAILY)
     Route: 065

REACTIONS (14)
  - Syncope [Not Recovered/Not Resolved]
  - Feeling cold [Unknown]
  - Pallor [Unknown]
  - Nausea [Unknown]
  - Hyperlipidaemia [Unknown]
  - Headache [Not Recovered/Not Resolved]
  - Joint swelling [Unknown]
  - Movement disorder [Unknown]
  - Wound [Unknown]
  - Head injury [Unknown]
  - Nasopharyngitis [Unknown]
  - Product distribution issue [Unknown]
  - Incorrect dose administered [Not Recovered/Not Resolved]
  - Drug ineffective [Unknown]

NARRATIVE: CASE EVENT DATE: 20230826
